FAERS Safety Report 7508275-7 (Version None)
Quarter: 2011Q2

REPORT INFORMATION
  Report Type: 
  Country: None (occurrence: None)
  Receive Date: 20110527
  Receipt Date: 20110520
  Transmission Date: 20111010
  Serious: Yes (Other)
  Sender: FDA-Public Use
  Company Number: FR-PFIZER INC-2011109232

PATIENT
  Age: 61 Year
  Sex: Female

DRUGS (10)
  1. LEUCOVORIN CALCIUM [Suspect]
     Dosage: 314 MG, CYCLIC
     Route: 042
     Dates: start: 20101230, end: 20101230
  2. OXALIPLATIN [Concomitant]
     Dosage: 138 MG, CYCLIC
     Dates: start: 20101230, end: 20101230
  3. OXALIPLATIN [Concomitant]
     Dosage: 136 MG, CYCLIC
     Dates: start: 20110113, end: 20110113
  4. FORLAX [Concomitant]
     Dosage: UNK
  5. IRINOTECAN HCL [Suspect]
     Dosage: 288 MG, CYCLIC
     Route: 042
     Dates: start: 20110113, end: 20110113
  6. LEUCOVORIN CALCIUM [Suspect]
     Dosage: 320 MG, CYCLIC
     Route: 042
     Dates: start: 20110113, end: 20110113
  7. FLUOROURACIL [Suspect]
     Dosage: 648 MG, SINGLE DOSE
     Route: 042
     Dates: start: 20101230, end: 20101230
  8. FLUOROURACIL [Suspect]
     Dosage: 3888 MG, CYCLIC
     Route: 042
     Dates: start: 20101230, end: 20101230
  9. CODEINE [Concomitant]
     Dosage: UNK
  10. IRINOTECAN HCL [Suspect]
     Dosage: 292 MG, CYCLIC
     Route: 042
     Dates: start: 20101230, end: 20101230

REACTIONS (5)
  - LARYNGEAL DYSPNOEA [None]
  - NAUSEA [None]
  - VOMITING [None]
  - MALAISE [None]
  - DIARRHOEA [None]
